FAERS Safety Report 22650875 (Version 2)
Quarter: 2023Q2

REPORT INFORMATION
  Report Type: Spontaneous
  Country: US (occurrence: US)
  Receive Date: 20230628
  Receipt Date: 20230629
  Transmission Date: 20230721
  Serious: No
  Sender: FDA-Public Use
  Company Number: US-SA-SAC20230626000246

PATIENT
  Age: 27 Year
  Sex: Female
  Weight: 96.6 kg

DRUGS (3)
  1. DUPIXENT [Suspect]
     Active Substance: DUPILUMAB
     Indication: Dermatitis atopic
     Dosage: 300 MG, QOW
     Route: 058
     Dates: end: 202303
  2. LEXAPRO [Concomitant]
     Active Substance: ESCITALOPRAM OXALATE
  3. ELIDEL [Concomitant]
     Active Substance: PIMECROLIMUS

REACTIONS (5)
  - Temperature intolerance [Unknown]
  - Dermatitis atopic [Unknown]
  - Pruritus [Unknown]
  - Skin swelling [Unknown]
  - Rash papular [Unknown]

NARRATIVE: CASE EVENT DATE: 20230601
